FAERS Safety Report 5147139-3 (Version None)
Quarter: 2006Q4

REPORT INFORMATION
  Report Type: 
  Country: None (occurrence: None)
  Receive Date: 20061103
  Receipt Date: 20061018
  Transmission Date: 20070319
  Serious: Yes (Other)
  Sender: FDA-Public Use
  Company Number: S06-FRA-04524-01

PATIENT
  Age: 33 Year
  Sex: Female

DRUGS (3)
  1. CITALOPRAM HYDROBROMIDE [Suspect]
     Indication: DEPRESSION
     Dates: start: 20060301, end: 20060801
  2. LEVOTHYROXINE SODIUM [Concomitant]
  3. INTRAUTERINE CONTRACEPTIVE DEVICE [Concomitant]

REACTIONS (5)
  - AMENORRHOEA [None]
  - CUSHING'S SYNDROME [None]
  - ECCHYMOSIS [None]
  - HOT FLUSH [None]
  - SLEEP DISORDER [None]
